FAERS Safety Report 11124194 (Version 1)
Quarter: 2015Q2

REPORT INFORMATION
  Report Type: Spontaneous
  Country: US (occurrence: None)
  Receive Date: 20150519
  Receipt Date: 20150519
  Transmission Date: 20150821
  Serious: Yes (Hospitalization)
  Sender: FDA-Public Use
  Company Number: None

PATIENT
  Sex: Female
  Weight: 64.6 kg

DRUGS (11)
  1. LIGUSTRIN [Concomitant]
  2. ESCITALOPRAM (LEXAPRO) [Concomitant]
  3. LASIX [Concomitant]
     Active Substance: FUROSEMIDE
  4. MULTIVITAMIN [Concomitant]
     Active Substance: VITAMINS
  5. LEDIPASVIR-SOFOSB UVIR (HARVONI) [Concomitant]
  6. HARVONI [Suspect]
     Active Substance: LEDIPASVIR\SOFOSBUVIR
     Indication: HEPATITIS C
     Route: 048
     Dates: start: 20150109
  7. ZHANG - DIETARY SUPPLEMENT FOR LIVER HEALTH [Concomitant]
  8. CIRCULATION P DIETARY SUPPLEMENT FOR LIVER HEALTH [Concomitant]
  9. SPIRONOLACTONE (ALDACTONE) [Concomitant]
  10. HEPAPRO - MVM LIVER FORMULA [Concomitant]
  11. LACTULOSE (CHRONULAC) [Concomitant]

REACTIONS (4)
  - Pancytopenia [None]
  - Acute kidney injury [None]
  - Streptococcus test positive [None]
  - Dizziness [None]

NARRATIVE: CASE EVENT DATE: 20150324
